FAERS Safety Report 8339301-3 (Version None)
Quarter: 2012Q2

REPORT INFORMATION
  Report Type: 
  Country: None (occurrence: None)
  Receive Date: 20120507
  Receipt Date: 20120424
  Transmission Date: 20120825
  Serious: Yes (Hospitalization, Other)
  Sender: FDA-Public Use
  Company Number: US-JNJFOC-20120401295

PATIENT
  Sex: Male
  Weight: 58.97 kg

DRUGS (14)
  1. REMICADE [Suspect]
     Route: 042
     Dates: start: 20110928
  2. ASPIRIN [Concomitant]
     Indication: CEREBROVASCULAR ACCIDENT
     Route: 065
     Dates: start: 20010701
  3. SIMVASTATIN [Concomitant]
     Indication: BLOOD CHOLESTEROL INCREASED
     Route: 048
     Dates: start: 20070101
  4. REMICADE [Suspect]
     Route: 042
     Dates: start: 20120322
  5. AMLODIPINE [Concomitant]
     Route: 048
     Dates: start: 20010701
  6. AMLODIPINE [Concomitant]
     Indication: HYPERTENSION
     Route: 048
     Dates: start: 20090101
  7. METOPROLOL TARTRATE [Concomitant]
     Indication: ARRHYTHMIA
     Route: 065
     Dates: start: 20110801
  8. REMICADE [Suspect]
     Dosage: APPROXIMATELY 300-318 ML EVERY 6 WEEKS
     Route: 042
     Dates: start: 20051115
  9. REMICADE [Suspect]
     Indication: ANKYLOSING SPONDYLITIS
     Route: 042
     Dates: start: 20111118
  10. OMEPRAZOLE [Concomitant]
     Indication: GASTROOESOPHAGEAL REFLUX DISEASE
     Route: 048
     Dates: start: 20030301
  11. REMICADE [Suspect]
     Route: 042
     Dates: start: 20070101
  12. REMICADE [Suspect]
     Route: 042
     Dates: start: 20110809
  13. OMEPRAZOLE [Concomitant]
     Route: 048
     Dates: start: 20090101
  14. SIMVASTATIN [Concomitant]
     Route: 048
     Dates: start: 20010701

REACTIONS (6)
  - PARAESTHESIA [None]
  - ARRHYTHMIA [None]
  - PRURITUS [None]
  - ARTHRITIS [None]
  - ARTHROPATHY [None]
  - TRANSIENT ISCHAEMIC ATTACK [None]
